FAERS Safety Report 17443278 (Version 1)
Quarter: 2020Q1

REPORT INFORMATION
  Report Type: Spontaneous
  Country: US (occurrence: US)
  Receive Date: 20200221
  Receipt Date: 20200221
  Transmission Date: 20200409
  Serious: No
  Sender: FDA-Public Use
  Company Number: US-DRREDDYS-USA/USA/20/0119630

PATIENT
  Sex: Female
  Weight: 65.25 kg

DRUGS (1)
  1. ATORVASTATIN TABLETS 80 MG (202357) [Suspect]
     Active Substance: ATORVASTATIN
     Indication: BLOOD CHOLESTEROL INCREASED
     Route: 048

REACTIONS (1)
  - Back pain [Recovered/Resolved]
